FAERS Safety Report 24566355 (Version 1)
Quarter: 2024Q4

REPORT INFORMATION
  Report Type: Spontaneous
  Country: FR (occurrence: FR)
  Receive Date: 20241030
  Receipt Date: 20241030
  Transmission Date: 20250114
  Serious: Yes (Other)
  Sender: ABBVIE
  Company Number: FR-ABBVIE-5980391

PATIENT
  Sex: Female

DRUGS (1)
  1. BOTOX [Suspect]
     Active Substance: ONABOTULINUMTOXINA
     Indication: Muscle disorder
     Dosage: TIME INTERVAL: AS NECESSARY
     Route: 065
     Dates: start: 202402, end: 202402

REACTIONS (3)
  - Cerebrovascular accident [Unknown]
  - Off label use [Unknown]
  - Jaw operation [Unknown]

NARRATIVE: CASE EVENT DATE: 20240101
